FAERS Safety Report 6802491-5 (Version None)
Quarter: 2010Q2

REPORT INFORMATION
  Report Type: 
  Country: None (occurrence: None)
  Receive Date: 20100628
  Receipt Date: 20100616
  Transmission Date: 20101027
  Serious: Yes (Hospitalization, Other)
  Sender: FDA-Public Use
  Company Number: US-BAYER-200938611NA

PATIENT
  Age: 47 Year
  Sex: Female
  Weight: 98 kg

DRUGS (5)
  1. MIRENA [Suspect]
     Indication: CONTRACEPTION
     Dosage: CONTINUOUS
     Route: 015
     Dates: start: 20030822, end: 20091002
  2. MIRENA [Suspect]
     Dosage: CONTINUOUS
     Route: 015
     Dates: start: 20091210
  3. BUPROPION HCL [Concomitant]
     Dosage: TOTAL DAILY DOSE: 400 MG
     Route: 048
  4. SYNTHROID [Concomitant]
     Dosage: TOTAL DAILY DOSE: 112 MG
     Route: 048
  5. ADDERALL 10 [Concomitant]
     Route: 048

REACTIONS (2)
  - COMPLICATION OF DEVICE INSERTION [None]
  - DEVICE BREAKAGE [None]
